FAERS Safety Report 5886873-4 (Version None)
Quarter: 2008Q3

REPORT INFORMATION
  Report Type: 
  Country: None (occurrence: None)
  Receive Date: 20080915
  Receipt Date: 20080910
  Transmission Date: 20090109
  Serious: Yes (Hospitalization)
  Sender: FDA-Public Use
  Company Number: THQ2008A01834

PATIENT
  Sex: Female

DRUGS (1)
  1. ZOTON FASTAB (LANSOPRAZOLE)(TABLETS) [Suspect]
     Dosage: PER ORAL
     Route: 048
     Dates: start: 20080301

REACTIONS (1)
  - PHOTOSENSITIVITY REACTION [None]
